FAERS Safety Report 8890747 (Version 2)
Quarter: 2012Q4

REPORT INFORMATION
  Report Type: 
  Country: JP (occurrence: JP)
  Receive Date: 20121106
  Receipt Date: 20121114
  Transmission Date: 20130627
  Serious: Yes (Other)
  Sender: FDA-Public Use
  Company Number: JP-MERCK-1211JPN001303

PATIENT
  Age: 76 Year
  Sex: Female

DRUGS (5)
  1. GLACTIV [Suspect]
     Indication: TYPE 2 DIABETES MELLITUS
     Dosage: 25 mg, qd
     Route: 048
     Dates: start: 20121025, end: 20121026
  2. AMARYL [Concomitant]
     Dosage: UNK
     Dates: end: 20121028
  3. SEREVENT [Concomitant]
  4. RYTHMODAN [Concomitant]
  5. VOGLIBOSE [Concomitant]
     Dosage: UNK
     Dates: end: 20121029

REACTIONS (2)
  - Hypoglycaemia [Recovered/Resolved]
  - Nausea [Recovered/Resolved]
